FAERS Safety Report 4459557-7 (Version None)
Quarter: 2004Q3

REPORT INFORMATION
  Report Type: 
  Country: None (occurrence: None)
  Receive Date: 20040910
  Receipt Date: 20040521
  Transmission Date: 20050211
  Serious: No
  Sender: FDA-Public Use
  Company Number: 2004215361US

PATIENT
  Sex: Female

DRUGS (2)
  1. BEXTRA [Suspect]
     Indication: ARTHRITIS
     Dosage: 10 MG, QD
     Dates: start: 20040501
  2. HYDROCHLOROTHIAZIDE [Concomitant]

REACTIONS (2)
  - JOINT STIFFNESS [None]
  - JOINT SWELLING [None]
